FAERS Safety Report 6119040-X (Version None)
Quarter: 2009Q1

REPORT INFORMATION
  Report Type: 
  Country: None (occurrence: None)
  Receive Date: 20090316
  Receipt Date: 20090304
  Transmission Date: 20090719
  Serious: Yes (Other)
  Sender: FDA-Public Use
  Company Number: CA-BAYER-200914837NA

PATIENT
  Age: 28 Year
  Sex: Female

DRUGS (1)
  1. YASMIN [Suspect]
     Indication: DRUG USE FOR UNKNOWN INDICATION
     Route: 048
     Dates: start: 20081201

REACTIONS (7)
  - ABDOMINAL PAIN [None]
  - BACK PAIN [None]
  - BLINDNESS TRANSIENT [None]
  - DERMATITIS [None]
  - FALL [None]
  - LIP EXFOLIATION [None]
  - ORAL PRURITUS [None]
